FAERS Safety Report 23171788 (Version 1)
Quarter: 2023Q4

REPORT INFORMATION
  Report Type: Spontaneous
  Country: US (occurrence: US)
  Receive Date: 20231110
  Receipt Date: 20231110
  Transmission Date: 20240109
  Serious: No
  Sender: FDA-Public Use
  Company Number: US-ABBVIE-5490491

PATIENT

DRUGS (2)
  1. RINVOQ [Suspect]
     Active Substance: UPADACITINIB
     Indication: Product used for unknown indication
     Dosage: START DATE: 2023
     Route: 048
  2. VENOFER [Concomitant]
     Active Substance: IRON SUCROSE
     Indication: Product used for unknown indication
     Dosage: VENOFER IRON INFUSION
     Dates: start: 20231031

REACTIONS (5)
  - Iron deficiency anaemia [Unknown]
  - Abdominal pain [Unknown]
  - Fatigue [Unknown]
  - Anaemia [Unknown]
  - Haemorrhage [Unknown]

NARRATIVE: CASE EVENT DATE: 20230101
